FAERS Safety Report 6366225-3 (Version None)
Quarter: 2009Q3

REPORT INFORMATION
  Report Type: 
  Country: None (occurrence: None)
  Receive Date: 20090921
  Receipt Date: 20090908
  Transmission Date: 20100115
  Serious: Yes (Other)
  Sender: FDA-Public Use
  Company Number: GB-RANBAXY-2009RR-28013

PATIENT
  Age: 77 Year
  Sex: Male
  Weight: 72 kg

DRUGS (2)
  1. FLUCONAZOLE [Suspect]
     Indication: DERMATITIS
     Dosage: 50 MG, UNK
     Route: 048
     Dates: start: 20090527, end: 20090829
  2. ECONAZOLE NITRATE [Concomitant]
     Dosage: UNK
     Dates: end: 20090702

REACTIONS (1)
  - HYPONATRAEMIA [None]
